FAERS Safety Report 6295757-1 (Version None)
Quarter: 2009Q3

REPORT INFORMATION
  Report Type: 
  Country: None (occurrence: None)
  Receive Date: 20090804
  Receipt Date: 20090717
  Transmission Date: 20100115
  Serious: Yes (Other)
  Sender: FDA-Public Use
  Company Number: SG-PFIZER INC-2009243485

PATIENT
  Age: 52 Year

DRUGS (1)
  1. PHENYTOIN AND PHENYTOIN SODIUM [Suspect]
     Dosage: 300 MG, UNK
     Route: 048
     Dates: start: 20090213, end: 20090219

REACTIONS (2)
  - HEPATITIS [None]
  - HYPERSENSITIVITY [None]
